FAERS Safety Report 25107305 (Version 1)
Quarter: 2025Q1

REPORT INFORMATION
  Report Type: Spontaneous
  Country: AT (occurrence: AT)
  Receive Date: 20250321
  Receipt Date: 20250321
  Transmission Date: 20250409
  Serious: Yes (Other)
  Sender: HILL DERMACEUTICALS, INC.
  Company Number: AT-Hill Dermaceuticals, Inc.-2173438

PATIENT
  Age: 85 Year
  Sex: Male

DRUGS (1)
  1. TOLAK [Suspect]
     Active Substance: FLUOROURACIL
     Indication: Product used for unknown indication

REACTIONS (2)
  - Face oedema [Unknown]
  - Flushing [Unknown]

NARRATIVE: CASE EVENT DATE: 20250214
